FAERS Safety Report 20148731 (Version 1)
Quarter: 2021Q4

REPORT INFORMATION
  Report Type: Report from Study
  Country: PK (occurrence: PK)
  Receive Date: 20211204
  Receipt Date: 20211204
  Transmission Date: 20220303
  Serious: Yes (Death)
  Sender: FDA-Public Use
  Company Number: PK-NOVARTISPH-NVSC2021PK277346

PATIENT
  Sex: Male
  Weight: 64 kg

DRUGS (1)
  1. GLIVEC [Suspect]
     Active Substance: IMATINIB MESYLATE
     Indication: Philadelphia positive chronic myeloid leukaemia
     Dosage: 2 DOSAGE FORM (100 MG), BID
     Route: 048
     Dates: start: 20210707

REACTIONS (2)
  - Cardio-respiratory arrest [Fatal]
  - Inappropriate schedule of product administration [Unknown]
